FAERS Safety Report 7320180-8 (Version None)
Quarter: 2011Q1

REPORT INFORMATION
  Report Type: 
  Country: None (occurrence: None)
  Receive Date: 20110223
  Receipt Date: 20110223
  Transmission Date: 20110831
  Serious: No
  Sender: FDA-Public Use
  Company Number: None

PATIENT
  Sex: Female
  Weight: 113.3993 kg

DRUGS (1)
  1. PANTOPRAZOLE SODIUM [Suspect]
     Dosage: 40 MG Q DAY PO
     Route: 048
     Dates: start: 20101119, end: 20101122

REACTIONS (2)
  - PRODUCT SUBSTITUTION ISSUE [None]
  - ANXIETY [None]
